FAERS Safety Report 8341126-X (Version None)
Quarter: 2012Q2

REPORT INFORMATION
  Report Type: 
  Country: None (occurrence: None)
  Receive Date: 20120507
  Receipt Date: 20120502
  Transmission Date: 20120825
  Serious: Yes (Life-Threatening)
  Sender: FDA-Public Use
  Company Number: CH-GLAXOSMITHKLINE-B0799626A

PATIENT
  Age: 83 Year
  Sex: Female

DRUGS (11)
  1. CITALOPRAM HYDROBROMIDE [Suspect]
     Indication: DEPRESSION
     Dosage: 10MG PER DAY
     Route: 048
  2. DIGOXIN [Concomitant]
     Indication: ARRHYTHMIA SUPRAVENTRICULAR
     Dosage: .25MG PER DAY
     Route: 048
  3. ZOLPIDEM [Concomitant]
     Indication: SLEEP DISORDER
     Dosage: 5MG PER DAY
     Route: 048
  4. FLOXAPEN [Concomitant]
     Indication: INFECTIVE SPONDYLITIS
     Dosage: 2G SIX TIMES PER DAY
     Route: 042
     Dates: start: 20120125
  5. MORPHINE [Concomitant]
     Indication: INFECTIVE SPONDYLITIS
     Dosage: 2.5MG SIX TIMES PER DAY
     Route: 048
     Dates: start: 20120125
  6. LAXOBERON [Concomitant]
     Indication: CONSTIPATION
     Dosage: 20DROP TWICE PER DAY
     Route: 048
     Dates: start: 20120125
  7. LORAZEPAM [Concomitant]
     Indication: ANXIETY DISORDER
     Dosage: 1MG PER DAY
     Route: 048
  8. SINTROM [Suspect]
     Indication: ARRHYTHMIA SUPRAVENTRICULAR
     Dosage: 3MG PER DAY
     Route: 048
     Dates: end: 20120220
  9. TORSEMIDE [Suspect]
     Indication: PRODUCT USED FOR UNKNOWN INDICATION
     Dosage: 10MG PER DAY
     Route: 048
  10. CALCIMAGON-D3 [Concomitant]
     Indication: OSTEOPOROSIS
     Dosage: 500MG TWICE PER DAY
     Route: 048
  11. ZOFRAN [Suspect]
     Indication: NAUSEA
     Dosage: 4MG THREE TIMES PER DAY
     Route: 042
     Dates: start: 20120215, end: 20120304

REACTIONS (1)
  - INTERNATIONAL NORMALISED RATIO INCREASED [None]
